FAERS Safety Report 6283477-9 (Version None)
Quarter: 2009Q3

REPORT INFORMATION
  Report Type: 
  Country: None (occurrence: None)
  Receive Date: 20090721
  Receipt Date: 20090721
  Transmission Date: 20100115
  Serious: Yes (Other)
  Sender: FDA-Public Use
  Company Number: None

PATIENT
  Age: 38 Year
  Sex: Female
  Weight: 58.514 kg

DRUGS (1)
  1. MIRENA [Suspect]
     Indication: CONTRACEPTION
     Dates: start: 20060911, end: 20090716

REACTIONS (9)
  - ACNE CYSTIC [None]
  - AFFECTIVE DISORDER [None]
  - ANGER [None]
  - ARTHRALGIA [None]
  - BREAST TENDERNESS [None]
  - IRRITABILITY [None]
  - LOSS OF LIBIDO [None]
  - MOOD SWINGS [None]
  - WEIGHT INCREASED [None]
